FAERS Safety Report 8207163-0 (Version None)
Quarter: 2012Q1

REPORT INFORMATION
  Report Type: 
  Country: None (occurrence: None)
  Receive Date: 20120314
  Receipt Date: 20120308
  Transmission Date: 20120608
  Serious: No
  Sender: FDA-Public Use
  Company Number: US-PFIZER INC-2012063355

PATIENT
  Sex: Male
  Weight: 93.4 kg

DRUGS (1)
  1. SUTENT [Suspect]
     Indication: METASTATIC RENAL CELL CARCINOMA
     Dosage: 50 MG, UNK (FOR 14 DAYS AND RESTING FOR 7 WEEKS)
     Dates: start: 20120225

REACTIONS (5)
  - PRURITUS [None]
  - DRY SKIN [None]
  - SKIN FISSURES [None]
  - NASAL DRYNESS [None]
  - DRY MOUTH [None]
